FAERS Safety Report 24761375 (Version 1)
Quarter: 2024Q4

REPORT INFORMATION
  Report Type: Spontaneous
  Country: LK (occurrence: LK)
  Receive Date: 20241220
  Receipt Date: 20241220
  Transmission Date: 20250115
  Serious: Yes (Other)
  Sender: PURDUE
  Company Number: LK-PURDUE-USA-2024-0314152

PATIENT
  Age: 37 Year
  Sex: Male

DRUGS (3)
  1. DEXTROAMPHETAMINE SACCHARATE, AMPHETAMINE ASPARTATE, DEXTROAMPHETAMINE [Suspect]
     Active Substance: AMPHETAMINE ASPARTATE\AMPHETAMINE SULFATE\DEXTROAMPHETAMINE SACCHARATE\DEXTROAMPHETAMINE SULFATE
     Indication: Product used for unknown indication
     Dosage: UNK
     Route: 048
  2. METHAMPHETAMINE [Suspect]
     Active Substance: METHAMPHETAMINE
     Indication: Product used for unknown indication
     Dosage: UNK
     Route: 065
  3. HEROIN [Suspect]
     Active Substance: DIAMORPHINE
     Indication: Product used for unknown indication
     Dosage: UNK
     Route: 055

REACTIONS (7)
  - Haematoma [Unknown]
  - Cardiac aneurysm [Unknown]
  - Acute myocardial infarction [Unknown]
  - Heart failure with reduced ejection fraction [Unknown]
  - Cardiac failure acute [Recovered/Resolved]
  - Drug abuse [Unknown]
  - Coronary artery stenosis [Unknown]
